FAERS Safety Report 9003452 (Version 1)
Quarter: 2013Q1

REPORT INFORMATION
  Report Type: Spontaneous
  Country: US (occurrence: US)
  Receive Date: 20130108
  Receipt Date: 20130108
  Transmission Date: 20140127
  Serious: Yes (Hospitalization)
  Sender: FDA-Public Use
  Company Number: US-TEVA-379367USA

PATIENT
  Age: 41 None
  Sex: Female
  Weight: 68.1 kg

DRUGS (3)
  1. MERCAPTOPURINE [Suspect]
     Indication: CROHN^S DISEASE
  2. MERCAPTOPURINE [Suspect]
     Indication: COLITIS ULCERATIVE
  3. HUMIRA [Suspect]
     Indication: CROHN^S DISEASE
     Dosage: 5.7143 MILLIGRAM DAILY;
     Route: 058
     Dates: start: 2008

REACTIONS (5)
  - Colitis ulcerative [Recovered/Resolved]
  - Crohn^s disease [Recovered/Resolved]
  - Influenza [Recovered/Resolved]
  - Stress [Recovered/Resolved]
  - Drug dose omission [Recovered/Resolved]
